FAERS Safety Report 8618633-5 (Version None)
Quarter: 2012Q3

REPORT INFORMATION
  Report Type: 
  Country: None (occurrence: None)
  Receive Date: 20120824
  Receipt Date: 20120820
  Transmission Date: 20120928
  Serious: Yes (Life-Threatening, Other)
  Sender: FDA-Public Use
  Company Number: US-TEVA-354635USA

PATIENT
  Sex: Female
  Weight: 139.7 kg

DRUGS (13)
  1. LORAZEPAM [Concomitant]
  2. WARFARIN SODIUM [Concomitant]
  3. NIFEDIPINE [Concomitant]
  4. CITALOPRAM HYDROBROMIDE [Concomitant]
  5. FIORNAL [Concomitant]
  6. JOINT FOOD [Concomitant]
  7. TYLOX [Concomitant]
  8. LOSARTAN POTASSIUM [Concomitant]
  9. OMEPRAZOLE [Concomitant]
  10. PACLITAXEL [Concomitant]
  11. CARBOPLATIN [Suspect]
     Indication: OVARIAN CANCER
     Route: 042
     Dates: start: 20120711, end: 20120809
  12. CALCIUM D3 [Concomitant]
  13. DEXAMETHASONE [Concomitant]

REACTIONS (3)
  - HYPOXIA [None]
  - UNRESPONSIVE TO STIMULI [None]
  - GLOSSODYNIA [None]
